FAERS Safety Report 5886981-8 (Version None)
Quarter: 2008Q3

REPORT INFORMATION
  Report Type: 
  Country: None (occurrence: None)
  Receive Date: 20080917
  Receipt Date: 20080901
  Transmission Date: 20090109
  Serious: No
  Sender: FDA-Public Use
  Company Number: US-B.I. PHARMACEUTICALS,INC./RIDGEFIELD-2008-BP-13915BP

PATIENT
  Sex: Male

DRUGS (7)
  1. SPIRIVA [Suspect]
     Indication: CHRONIC OBSTRUCTIVE PULMONARY DISEASE
     Dosage: 18MCG
     Route: 055
     Dates: start: 20080601
  2. COMBIVENT [Suspect]
     Dosage: VARIES
  3. NITRO-BID [Concomitant]
     Dosage: 27MG
  4. LOPRESSOR [Concomitant]
     Dosage: 75MG
  5. CARDIZEM [Concomitant]
     Dosage: 240MG
  6. ZOCOR [Concomitant]
     Dosage: 80MG
  7. MAXZIDE [Concomitant]
     Dosage: 75MG

REACTIONS (2)
  - DRUG SCREEN POSITIVE [None]
  - GENITAL RASH [None]
